FAERS Safety Report 5062883-4 (Version None)
Quarter: 2006Q3

REPORT INFORMATION
  Report Type: 
  Country: None (occurrence: None)
  Receive Date: 20060724
  Receipt Date: 20060718
  Transmission Date: 20061208
  Serious: Yes (Life-Threatening, Hospitalization)
  Sender: FDA-Public Use
  Company Number: 200610670BFR

PATIENT
  Age: 71 Year
  Sex: Male
  Weight: 75 kg

DRUGS (4)
  1. NEXAVAR [Suspect]
     Indication: METASTATIC RENAL CELL CARCINOMA
     Dosage: 200 MG, BID, ORAL
     Route: 048
     Dates: start: 20060614, end: 20060621
  2. ANDROCUR [Concomitant]
  3. ASPIRIN [Concomitant]
  4. COVERSYL [PERINODPRIL] [Concomitant]

REACTIONS (2)
  - DISEASE PROGRESSION [None]
  - INTRAVENTRICULAR HAEMORRHAGE [None]
